FAERS Safety Report 5323618-0 (Version None)
Quarter: 2007Q2

REPORT INFORMATION
  Report Type: 
  Country: None (occurrence: None)
  Receive Date: 20070510
  Receipt Date: 20070510
  Transmission Date: 20071010
  Serious: Yes (Other)
  Sender: FDA-Public Use
  Company Number: None

PATIENT
  Sex: Female
  Weight: 102.0593 kg

DRUGS (2)
  1. LASIX [Suspect]
     Indication: FLUID RETENTION
     Dosage: 1 BID
  2. LASIX [Suspect]
     Indication: OEDEMA
     Dosage: 1 BID

REACTIONS (1)
  - DRUG INEFFECTIVE [None]
